FAERS Safety Report 9888562 (Version 1)
Quarter: 2014Q1

REPORT INFORMATION
  Report Type: Spontaneous
  Country: US (occurrence: US)
  Receive Date: 20140211
  Receipt Date: 20140211
  Transmission Date: 20141002
  Serious: No
  Sender: FDA-Public Use
  Company Number: US-009507513-1401USA012688

PATIENT
  Sex: Female

DRUGS (2)
  1. LOSARTAN POTASSIUM [Suspect]
     Indication: BLOOD PRESSURE
     Dosage: 1 TABLET TWICE A DAY
     Route: 048
     Dates: start: 2012
  2. LOSARTAN POTASSIUM [Suspect]
     Dosage: 1/2 TABLET OF THE 25 MG TWICE A DAY
     Route: 048

REACTIONS (2)
  - Blood pressure increased [Unknown]
  - Wrong technique in drug usage process [Unknown]
